FAERS Safety Report 5145543-0 (Version None)
Quarter: 2006Q4

REPORT INFORMATION
  Report Type: 
  Country: None (occurrence: None)
  Receive Date: 20061101
  Receipt Date: 20061017
  Transmission Date: 20070319
  Serious: Yes (Hospitalization)
  Sender: FDA-Public Use
  Company Number: AZAUS200600396

PATIENT
  Age: 79 Year
  Sex: Female
  Weight: 83.2 kg

DRUGS (11)
  1. VIDAZA [Suspect]
     Indication: MYELODYSPLASTIC SYNDROME
     Dosage: 75  MG/M2 (DAILY X 7 DAYS), SUBCUTANEOUS
     Route: 058
     Dates: start: 20061005, end: 20061011
  2. MGCD0103 [Suspect]
     Indication: MYELODYSPLASTIC SYNDROME
     Dosage: 135 MG (THREE TIMES WEEKLY), ORAL
     Route: 048
     Dates: start: 20061009
  3. SPIRIVA [Concomitant]
  4. ADVAIR DISKUS 100/50 [Concomitant]
  5. FLONASE [Concomitant]
  6. ALLEGRA [Concomitant]
  7. ZOLOFT [Concomitant]
  8. FOLATE (FOLIC ACID) [Concomitant]
  9. METAMUCIL (ISPAGHULA HUSK) [Concomitant]
  10. ETHAMBUTOL HYDROCHLORIDE [Concomitant]
  11. ZITHROMAX [Concomitant]

REACTIONS (6)
  - ANAEMIA [None]
  - DILATATION ATRIAL [None]
  - EPISTAXIS [None]
  - THROMBOCYTOPENIA [None]
  - VENTRICULAR EXTRASYSTOLES [None]
  - VENTRICULAR HYPERTROPHY [None]
